FAERS Safety Report 11626662 (Version 1)
Quarter: 2015Q4

REPORT INFORMATION
  Report Type: Spontaneous
  Country: JP (occurrence: JP)
  Receive Date: 20151013
  Receipt Date: 20151013
  Transmission Date: 20160304
  Serious: Yes (Other)
  Sender: FDA-Public Use
  Company Number: JP-OTSUKA-006850

PATIENT
  Age: 42 Year
  Sex: Female

DRUGS (4)
  1. CYCLOPHOSPHAMIDE. [Concomitant]
     Active Substance: CYCLOPHOSPHAMIDE
     Indication: BONE MARROW TRANSPLANT
     Dates: start: 2008, end: 2008
  2. METHOTREXATE [Concomitant]
     Active Substance: METHOTREXATE
     Indication: PROPHYLAXIS AGAINST GRAFT VERSUS HOST DISEASE
     Dates: start: 2008, end: 2008
  3. BUSULFEX [Suspect]
     Active Substance: BUSULFAN
     Indication: BONE MARROW TRANSPLANT
     Dosage: UNK, UNK
     Dates: start: 2008, end: 2008
  4. CICLOSPORIN [Concomitant]
     Active Substance: CYCLOSPORINE
     Indication: PROPHYLAXIS AGAINST GRAFT VERSUS HOST DISEASE
     Dates: start: 2008, end: 2008

REACTIONS (9)
  - Acute graft versus host disease [Recovering/Resolving]
  - Stomatitis [Unknown]
  - Intracranial venous sinus thrombosis [Recovering/Resolving]
  - Rash [Unknown]
  - Platelet count decreased [Unknown]
  - Nausea [Recovering/Resolving]
  - Chronic graft versus host disease [Unknown]
  - Headache [Recovering/Resolving]
  - Vomiting [Recovering/Resolving]
